FAERS Safety Report 21418021 (Version 4)
Quarter: 2024Q3

REPORT INFORMATION
  Report Type: Spontaneous
  Country: BR (occurrence: BR)
  Receive Date: 20221006
  Receipt Date: 20240916
  Transmission Date: 20241017
  Serious: Yes (Other)
  Sender: GLAXOSMITHKLINE
  Company Number: BR-GLAXOSMITHKLINE-BR2021AMR011188

PATIENT

DRUGS (7)
  1. BENLYSTA [Suspect]
     Active Substance: BELIMUMAB
     Indication: Systemic lupus erythematosus
     Dosage: 400 MG, BID (2 AMPOULES OF 400 MG EQUALS TO 800 MG
     Route: 042
     Dates: start: 20210122
  2. BENLYSTA [Suspect]
     Active Substance: BELIMUMAB
     Dosage: UNK
     Dates: start: 20220122
  3. COVID-19 VACCINE [Concomitant]
     Indication: COVID-19 prophylaxis
     Dosage: UNK, FIRST DOSE
  4. COVID-19 VACCINE [Concomitant]
     Dosage: UNK, SECOND DOSE
  5. COVID-19 VACCINE [Concomitant]
     Dosage: UNK, THIRD DOSE
  6. COVID-19 VACCINE [Concomitant]
     Dosage: UNK, FOURTH DOSE
     Dates: start: 20220628
  7. AZATHIOPRINE [Concomitant]
     Active Substance: AZATHIOPRINE
     Indication: Product used for unknown indication
     Dosage: UNK

REACTIONS (3)
  - Gastric cancer [Recovered/Resolved]
  - Inappropriate schedule of product administration [Not Recovered/Not Resolved]
  - Product dose omission issue [Unknown]

NARRATIVE: CASE EVENT DATE: 20220708
